FAERS Safety Report 21375706 (Version 1)
Quarter: 2022Q3

REPORT INFORMATION
  Report Type: Report from Study
  Country: US (occurrence: US)
  Receive Date: 20220926
  Receipt Date: 20220926
  Transmission Date: 20221027
  Serious: Yes (Other)
  Sender: FDA-Public Use
  Company Number: US-ABBVIE-4129841

PATIENT
  Sex: Female

DRUGS (3)
  1. SKYRIZI [Suspect]
     Active Substance: RISANKIZUMAB-RZAA
     Indication: Psoriasis
     Route: 058
  2. Pfizer/Biontech [Concomitant]
     Indication: COVID-19 immunisation
     Dosage: FREQUENCY: ONCE
     Route: 030
  3. Pfizer/Biontech [Concomitant]
     Indication: COVID-19 immunisation
     Dosage: FREQUENCY: ONCE
     Route: 030

REACTIONS (2)
  - Cervical vertebral fracture [Unknown]
  - Fall [Unknown]
